FAERS Safety Report 8297778 (Version 9)
Quarter: 2016Q1

REPORT INFORMATION
  Report Type: Report from Study
  Country: US (occurrence: US)
  Receive Date: 20111219
  Receipt Date: 20160310
  Transmission Date: 20160526
  Serious: Yes (Other)
  Sender: FDA-Public Use
  Company Number: US-UCBSA-047559

PATIENT
  Age: 0 Year
  Sex: Male
  Weight: 2.99 kg

DRUGS (8)
  1. FERROUS SULFATE [Concomitant]
     Active Substance: FERROUS SULFATE\FERROUS SULFATE, DRIED
     Indication: ANAEMIA
     Dosage: 65 MG, 3X/DAY (TID)
     Route: 064
  2. PEPCID AC [Concomitant]
     Active Substance: FAMOTIDINE
     Indication: DYSPEPSIA
     Route: 064
     Dates: end: 20110615
  3. TYLENOL [Concomitant]
     Active Substance: ACETAMINOPHEN
     Indication: HEADACHE
     Dosage: 1 CAPSULE AS NEEDED
     Route: 064
     Dates: end: 20110615
  4. LEVETIRACETAM. [Suspect]
     Active Substance: LEVETIRACETAM
     Indication: EPILEPSY
     Dosage: TOTAL DAILY DOSE : 3000 MG
     Route: 064
     Dates: start: 201010, end: 20110615
  5. LEVETIRACETAM. [Suspect]
     Active Substance: LEVETIRACETAM
     Indication: SEIZURE
  6. FOLIC ACID. [Concomitant]
     Active Substance: FOLIC ACID
     Indication: PREGNANCY
     Dosage: 2 MG, ONCE DAILY (QD)
     Route: 064
     Dates: start: 2010, end: 20110615
  7. TRAZODONE [Concomitant]
     Active Substance: TRAZODONE HYDROCHLORIDE
     Indication: ANXIETY
     Dosage: 25 MG, ONCE DAILY (QD)
     Route: 064
     Dates: start: 2010, end: 2010
  8. PRENATAL COMPLETE [Concomitant]
     Indication: VITAMIN SUPPLEMENTATION
     Dosage: .4 MG, ONCE DAILY (QD)
     Route: 064
     Dates: end: 20110615

REACTIONS (3)
  - Abnormal palmar/plantar creases [Unknown]
  - Premature baby [Unknown]
  - Foetal exposure during pregnancy [Recovered/Resolved]

NARRATIVE: CASE EVENT DATE: 201010
